APPROVED DRUG PRODUCT: LIDOCAINE HYDROCHLORIDE IN PLASTIC CONTAINER
Active Ingredient: LIDOCAINE HYDROCHLORIDE
Strength: 1%
Dosage Form/Route: INJECTABLE;INJECTION
Application: A088586 | Product #001 | TE Code: AP
Applicant: FRESENIUS KABI USA LLC
Approved: Jul 24, 1985 | RLD: No | RS: No | Type: RX